FAERS Safety Report 7675093-9 (Version None)
Quarter: 2011Q3

REPORT INFORMATION
  Report Type: 
  Country: None (occurrence: None)
  Receive Date: 20110810
  Receipt Date: 20110803
  Transmission Date: 20111222
  Serious: Yes (Hospitalization, Disabling, Other)
  Sender: FDA-Public Use
  Company Number: US-MERCK-0901USA03855

PATIENT
  Age: 52 Year
  Sex: Female
  Weight: 77 kg

DRUGS (3)
  1. FOSAMAX [Suspect]
     Indication: JUVENILE ARTHRITIS
     Route: 048
     Dates: start: 20030101, end: 20070201
  2. FOSAMAX [Suspect]
     Route: 048
     Dates: start: 20020101
  3. CORTICOSTEROIDS (UNSPECIFIED) [Concomitant]
     Route: 065
     Dates: start: 20020301, end: 20090801

REACTIONS (66)
  - OSTEONECROSIS OF JAW [None]
  - ANAEMIA [None]
  - POSTERIOR CAPSULE OPACIFICATION [None]
  - ARTHROPATHY [None]
  - SLEEP DISORDER [None]
  - CELLULITIS [None]
  - CATARACT [None]
  - IMPAIRED HEALING [None]
  - HYPOMAGNESAEMIA [None]
  - FALL [None]
  - UPPER RESPIRATORY TRACT INFECTION [None]
  - DIVERTICULUM [None]
  - ACQUIRED OESOPHAGEAL WEB [None]
  - OSTEOMYELITIS [None]
  - BACK DISORDER [None]
  - ARTHRALGIA [None]
  - RENAL FAILURE ACUTE [None]
  - BONE DISORDER [None]
  - INTERVERTEBRAL DISC PROTRUSION [None]
  - TENDONITIS [None]
  - LACERATION [None]
  - KIDNEY INFECTION [None]
  - VASCULAR INSUFFICIENCY [None]
  - TOOTH FRACTURE [None]
  - TOOTH DISORDER [None]
  - RENAL FAILURE CHRONIC [None]
  - CERUMEN IMPACTION [None]
  - INSOMNIA [None]
  - LYMPHADENOPATHY [None]
  - RESPIRATION ABNORMAL [None]
  - PERINEAL ABSCESS [None]
  - CALCULUS URETERIC [None]
  - HAND FRACTURE [None]
  - CYSTITIS [None]
  - ACUTE SINUSITIS [None]
  - STAPHYLOCOCCAL INFECTION [None]
  - NEPHROLITHIASIS [None]
  - FOOT FRACTURE [None]
  - ORAL CANDIDIASIS [None]
  - FRACTURE NONUNION [None]
  - GASTROENTERITIS VIRAL [None]
  - HYPOVOLAEMIC SHOCK [None]
  - SPONDYLOLISTHESIS [None]
  - HAEMORRHOIDS [None]
  - HIP FRACTURE [None]
  - ABSCESS [None]
  - BRONCHITIS [None]
  - DEPRESSION [None]
  - PAIN [None]
  - FATIGUE [None]
  - DYSLIPIDAEMIA [None]
  - HYPERTENSION [None]
  - ASPARTATE AMINOTRANSFERASE INCREASED [None]
  - ACTINOMYCOSIS [None]
  - HIATUS HERNIA [None]
  - OEDEMA [None]
  - TRAUMATIC HAEMATOMA [None]
  - DIARRHOEA [None]
  - ANXIETY [None]
  - LYMPHOEDEMA [None]
  - DRY SKIN [None]
  - SINUSITIS [None]
  - ROTATOR CUFF SYNDROME [None]
  - PLANTAR FASCIITIS [None]
  - CARDIOMYOPATHY [None]
  - BRUXISM [None]
